FAERS Safety Report 25962254 (Version 1)
Quarter: 2025Q4

REPORT INFORMATION
  Report Type: Spontaneous
  Country: JP (occurrence: JP)
  Receive Date: 20251027
  Receipt Date: 20251027
  Transmission Date: 20260117
  Serious: Yes (Disabling, Other)
  Sender: REGENERON
  Company Number: JP-BAYER-2025A117770

PATIENT
  Age: 89 Year
  Sex: Male

DRUGS (2)
  1. EYLEA [Suspect]
     Active Substance: AFLIBERCEPT
     Indication: Product used for unknown indication
     Dosage: UNK, SOLUTION FOR INJECTION IN PRE-FILLED SYRINGE, 114.3 MG/ML
  2. EYLEA [Suspect]
     Active Substance: AFLIBERCEPT
     Dosage: 8 MG, EVERY 4 WEEKS, LEFT EYE, TOTAL OF 2 TIMES, SOLUTION FOR INJECTION IN PRE-FILLED SYRINGE , 114.
     Route: 031
     Dates: start: 202508, end: 202508

REACTIONS (3)
  - Blindness [Unknown]
  - Eye infection intraocular [Unknown]
  - Eye inflammation [Not Recovered/Not Resolved]

NARRATIVE: CASE EVENT DATE: 20250911
